FAERS Safety Report 7421776-5 (Version None)
Quarter: 2011Q2

REPORT INFORMATION
  Report Type: 
  Country: None (occurrence: None)
  Receive Date: 20110418
  Receipt Date: 20110413
  Transmission Date: 20111010
  Serious: Yes (Hospitalization)
  Sender: FDA-Public Use
  Company Number: JP-SANOFI-AVENTIS-2011SA022883

PATIENT
  Sex: Male
  Weight: 105 kg

DRUGS (10)
  1. APIDRA [Suspect]
     Indication: DIABETES MELLITUS
     Dosage: EVENING
     Route: 058
     Dates: start: 20100906
  2. AMARYL [Concomitant]
     Indication: DIABETES MELLITUS
     Dosage: FROM 4 WEEKS BEFORE THE ADMINISTRATION OF INSULIN GLULISINE.
     Route: 048
  3. ACECOL [Concomitant]
     Dosage: IT WAS STARTED BEFORE THE ADMINISTRATION OF INSULIN GLULISINE.
     Route: 048
  4. ATELEC [Concomitant]
     Dosage: IT WAS STARTED BEFORE THE ADMINISTRATION OF INSULIN GLULISINE.
     Route: 048
  5. METFORMIN HCL [Concomitant]
     Indication: DIABETES MELLITUS
     Dosage: FROM 4 WEEKS BEFORE THE ADMINISTRATION OF INSULIN GLULISINE.
     Route: 048
  6. ACTOS [Concomitant]
     Indication: DIABETES MELLITUS
     Dosage: FROM 4 WEEKS BEFORE THE ADMINISTRATION OF INSULIN GLULISINE.
     Route: 048
  7. CRESTOR [Concomitant]
     Dosage: IT WAS STARTED BEFORE THE ADMINISTRATION OF INSULIN GLULISINE.
     Route: 048
  8. OLMETEC [Concomitant]
     Dosage: IT WAS STARTED BEFORE THE ADMINISTRATION OF INSULIN GLULISINE.
     Route: 048
  9. MIGLITOL [Concomitant]
     Indication: DIABETES MELLITUS
     Dosage: FROM 4 WEEKS BEFORE THE ADMINISTRATION OF INSULIN GLULISINE.
     Route: 048
  10. LANTUS [Concomitant]
     Indication: DIABETES MELLITUS
     Dosage: MORNING; FROM 4 WEEKS BEFORE THE ADMINISTRATION OF INSULIN GLULISINE.
     Route: 058

REACTIONS (1)
  - ADVERSE EVENT [None]
